FAERS Safety Report 8766124 (Version 2)
Quarter: 2013Q4

REPORT INFORMATION
  Report Type: Spontaneous
  Country: ZA (occurrence: ZA)
  Receive Date: 20120904
  Receipt Date: 20131105
  Transmission Date: 20140711
  Serious: Yes (Other)
  Sender: FDA-Public Use
  Company Number: ZA-009507513-1208ZAF011265

PATIENT
  Age: 38 Year
  Sex: Female

DRUGS (1)
  1. TEMODAL [Suspect]
     Indication: GLIOBLASTOMA MULTIFORME
     Dosage: 300 MG, FOR 5DAYS IN A 28 CYCLE
     Dates: start: 20120210

REACTIONS (4)
  - Blindness [Recovering/Resolving]
  - Monoparesis [Unknown]
  - Monoparesis [Recovering/Resolving]
  - Headache [Unknown]
